FAERS Safety Report 6082774-X (Version None)
Quarter: 2009Q1

REPORT INFORMATION
  Report Type: 
  Country: None (occurrence: None)
  Receive Date: 20090218
  Receipt Date: 20090209
  Transmission Date: 20090719
  Serious: Yes (Other)
  Sender: FDA-Public Use
  Company Number: GB-JNJFOC-20081105344

PATIENT
  Age: 6 Year
  Sex: Female
  Weight: 22.4 kg

DRUGS (2)
  1. TOPAMAX [Suspect]
     Indication: CONVULSION
     Route: 048
  2. VALPROATE SODIUM [Concomitant]
     Dosage: 320 MG AM, 400 MG PM
     Route: 065

REACTIONS (3)
  - GROWTH RETARDATION [None]
  - SOCIAL AVOIDANT BEHAVIOUR [None]
  - WEIGHT GAIN POOR [None]
